FAERS Safety Report 6089145-0 (Version None)
Quarter: 2009Q1

REPORT INFORMATION
  Report Type: 
  Country: None (occurrence: None)
  Receive Date: 20090220
  Receipt Date: 20090220
  Transmission Date: 20090719
  Serious: Yes (Other)
  Sender: FDA-Public Use
  Company Number: None

PATIENT
  Age: 32 Year
  Sex: Female
  Weight: 56.6996 kg

DRUGS (1)
  1. YAZ [Suspect]
     Indication: CONTRACEPTION
     Dosage: 1 TABLET DAILY PO
     Route: 048
     Dates: start: 20080721, end: 20090212

REACTIONS (9)
  - ANXIETY [None]
  - APATHY [None]
  - BLOOD PRESSURE INCREASED [None]
  - BLOOD THYROID STIMULATING HORMONE INCREASED [None]
  - DIZZINESS [None]
  - DRUG LEVEL DECREASED [None]
  - HEADACHE [None]
  - INSOMNIA [None]
  - WEIGHT DECREASED [None]
